FAERS Safety Report 19665968 (Version 1)
Quarter: 2021Q3

REPORT INFORMATION
  Report Type: Spontaneous
  Country: CN (occurrence: CN)
  Receive Date: 20210805
  Receipt Date: 20210805
  Transmission Date: 20211014
  Serious: Yes (Other)
  Sender: FDA-Public Use
  Company Number: CN-JNJFOC-20210805590

PATIENT
  Age: 13 Year
  Sex: Male
  Weight: 40 kg

DRUGS (2)
  1. TRAMADOL HYDROCHLORIDE. [Suspect]
     Active Substance: TRAMADOL HYDROCHLORIDE
     Indication: PAIN
     Dosage: 80 MILLIGRAM, 1/DAY
     Route: 042
     Dates: start: 20210717, end: 20210717
  2. NS [Concomitant]
     Active Substance: SODIUM CHLORIDE
     Indication: PAIN
     Dosage: 20 MILLILITRE, 1/DAY
     Route: 042
     Dates: start: 20210717, end: 20210717

REACTIONS (3)
  - Tremor [Recovered/Resolved]
  - Cyanosis [Recovered/Resolved]
  - Heart rate increased [Recovered/Resolved]

NARRATIVE: CASE EVENT DATE: 20210717
